FAERS Safety Report 21249845 (Version 1)
Quarter: 2022Q3

REPORT INFORMATION
  Report Type: Spontaneous
  Country: US (occurrence: US)
  Receive Date: 20220824
  Receipt Date: 20220824
  Transmission Date: 20221027
  Serious: No
  Sender: FDA-Public Use
  Company Number: US-009507513-2208USA002498

PATIENT
  Age: 8 Year

DRUGS (1)
  1. TEMODAR [Suspect]
     Active Substance: TEMOZOLOMIDE
     Dosage: 110 MILLIGRAM

REACTIONS (2)
  - Product prescribing issue [Unknown]
  - No adverse event [Unknown]
